FAERS Safety Report 9701225 (Version 1)
Quarter: 2013Q4

REPORT INFORMATION
  Report Type: Spontaneous
  Country: US (occurrence: None)
  Receive Date: 20131119
  Receipt Date: 20131119
  Transmission Date: 20140711
  Serious: Yes (Hospitalization)
  Sender: FDA-Public Use
  Company Number: AUR-APL-2013-09373

PATIENT
  Age: 51 Year
  Sex: Female

DRUGS (2)
  1. OXYCODONE+PARACETAMOL [Suspect]
     Indication: PRODUCT USED FOR UNKNOWN INDICATION
     Dosage: 35 DOSAGE FORMS, ORAL
     Route: 048
  2. HYDROXYCHLOROQUINE [Suspect]
     Indication: PRODUCT USED FOR UNKNOWN INDICATION
     Dosage: 60 DOAGE FORMS, ORAL
     Route: 048

REACTIONS (4)
  - Somnolence [None]
  - Hypotension [None]
  - Ventricular fibrillation [None]
  - Overdose [None]
